FAERS Safety Report 5728036-9 (Version None)
Quarter: 2008Q2

REPORT INFORMATION
  Report Type: 
  Country: None (occurrence: None)
  Receive Date: 20080505
  Receipt Date: 20080423
  Transmission Date: 20081010
  Serious: Yes (Other)
  Sender: FDA-Public Use
  Company Number: US-PFIZER INC-2008035911

PATIENT

DRUGS (1)
  1. ZYVOX [Suspect]
     Indication: PNEUMONIA

REACTIONS (2)
  - MALAISE [None]
  - RASH MACULO-PAPULAR [None]
